FAERS Safety Report 16583748 (Version 1)
Quarter: 2019Q3

REPORT INFORMATION
  Report Type: Spontaneous
  Country: DE (occurrence: DE)
  Receive Date: 20190717
  Receipt Date: 20190717
  Transmission Date: 20191004
  Serious: Yes (Hospitalization)
  Sender: FDA-Public Use
  Company Number: DE-TEVA-2019-DE-1078075

PATIENT
  Age: 72 Year
  Sex: Female

DRUGS (11)
  1. THIAMAZOL [Concomitant]
     Active Substance: METHIMAZOLE
     Dosage: 10 MG, 1-0-0-0
  2. CALCIUM [Concomitant]
     Active Substance: CALCIUM
     Dosage: NK MG, 1-0-1-0
  3. METAMIZOL [Concomitant]
     Active Substance: METAMIZOLE SODIUM
     Dosage: 500 MG, 0-1-0-1
  4. CELEBREX [Suspect]
     Active Substance: CELECOXIB
     Dosage: 200 MG, 1-0-1-0
  5. AMINEURIN 25MG [Concomitant]
     Dosage: 25 MG, 0-0-0-2
  6. PANTOPRAZOL [Concomitant]
     Active Substance: PANTOPRAZOLE SODIUM
     Dosage: 40 MG, 1-0-0-0
  7. METHOTREXAT [Suspect]
     Active Substance: METHOTREXATE
     Dosage: 50 MG, 1 X/WEEKLY
  8. DECORTIN 5MG [Suspect]
     Active Substance: PREDNISONE
     Dosage: 5 MG, 1-0-0-0
  9. RAMIPRIL. [Concomitant]
     Active Substance: RAMIPRIL
     Dosage: 10 MG, 0-0-1-0
  10. METOPROLOL. [Concomitant]
     Active Substance: METOPROLOL
     Dosage: 95 MG, 1-0-1-0
  11. AMLODIPIN [Concomitant]
     Active Substance: AMLODIPINE BESYLATE
     Dosage: 10 MG, 1-0-0-0

REACTIONS (5)
  - Liver function test abnormal [Unknown]
  - Cough [Unknown]
  - Influenza [Unknown]
  - Product prescribing error [Unknown]
  - Dyspnoea [Unknown]
